FAERS Safety Report 4654663-6 (Version None)
Quarter: 2005Q2

REPORT INFORMATION
  Report Type: 
  Country: None (occurrence: None)
  Receive Date: 20050503
  Receipt Date: 20050503
  Transmission Date: 20051028
  Serious: No
  Sender: FDA-Public Use
  Company Number: None

PATIENT
  Sex: Male
  Weight: 68.67 kg

DRUGS (2)
  1. CYTARABINE [Suspect]
     Dosage: 100 MG/M2/DAY BY CIV ON DAYS 1-7
     Route: 042
     Dates: start: 20050107
  2. DAUNORUBICIN HCL [Suspect]
     Dosage: 60 MG/M2/DAY BY IVP ON DAYS 1-3

REACTIONS (9)
  - ATELECTASIS [None]
  - BLOOD COUNT ABNORMAL [None]
  - CLOSTRIDIUM COLITIS [None]
  - DEHYDRATION [None]
  - DRUG TOXICITY [None]
  - GASTROENTERITIS [None]
  - HAEMOGLOBIN DECREASED [None]
  - HYPOKALAEMIA [None]
  - SEPSIS [None]
